FAERS Safety Report 6986078-X (Version None)
Quarter: 2010Q3

REPORT INFORMATION
  Report Type: 
  Country: None (occurrence: None)
  Receive Date: 20100910
  Receipt Date: 20100830
  Transmission Date: 20110219
  Serious: Yes (Hospitalization)
  Sender: FDA-Public Use
  Company Number: 10-000198

PATIENT
  Age: 36 Year
  Sex: Female
  Weight: 50.3 kg

DRUGS (7)
  1. LOESTRIN 24 FE [Suspect]
     Indication: CONTRACEPTION
     Dosage: 20/1000 UG, QD, ORAL
     Route: 048
     Dates: start: 20060101
  2. LOESTRIN 24 FE [Suspect]
     Indication: MENSTRUATION IRREGULAR
     Dosage: 20/1000 UG, QD, ORAL
     Route: 048
     Dates: start: 20060101
  3. PRENATAL VITAMINS (ASCORBIC ACID, BIOTIN, MINERALS NOS, NICOTINIC ACID [Concomitant]
  4. POTASSIUM (POTASSIUM GLUCONATE) [Concomitant]
  5. AMITRIPTYLINE HCL [Concomitant]
  6. PERIACTIN [Concomitant]
  7. SPIRONOLACTONE [Concomitant]

REACTIONS (6)
  - AMENORRHOEA [None]
  - BLOOD POTASSIUM DECREASED [None]
  - FEELING HOT [None]
  - MENSTRUATION IRREGULAR [None]
  - METRORRHAGIA [None]
  - OVARIAN CYST [None]
